FAERS Safety Report 10460080 (Version 1)
Quarter: 2014Q3

REPORT INFORMATION
  Report Type: Spontaneous
  Country: US (occurrence: US)
  Receive Date: 20140917
  Receipt Date: 20140917
  Transmission Date: 20150326
  Serious: No
  Sender: FDA-Public Use
  Company Number: US-ELI_LILLY_AND_COMPANY-US201408010699

PATIENT
  Sex: Male

DRUGS (3)
  1. HUMALOG [Suspect]
     Active Substance: INSULIN LISPRO
     Indication: PRODUCT USED FOR UNKNOWN INDICATION
     Dosage: 55 DF, EACH MORNING
     Route: 065
     Dates: start: 201308
  2. HUMALOG [Suspect]
     Active Substance: INSULIN LISPRO
     Dosage: 50 DF, QD
     Route: 065
     Dates: start: 201308
  3. HUMALOG [Suspect]
     Active Substance: INSULIN LISPRO
     Dosage: 40 DF, EACH EVENING
     Route: 065
     Dates: start: 201308

REACTIONS (1)
  - Blood glucose increased [Unknown]
